FAERS Safety Report 15640107 (Version 2)
Quarter: 2018Q4

REPORT INFORMATION
  Report Type: Spontaneous
  Country: US (occurrence: US)
  Receive Date: 20181120
  Receipt Date: 20181127
  Transmission Date: 20190205
  Serious: No
  Sender: FDA-Public Use
  Company Number: US-PFIZER INC-2018469554

PATIENT
  Age: 76 Year
  Sex: Female
  Weight: 68.27 kg

DRUGS (6)
  1. IBRANCE [Suspect]
     Active Substance: PALBOCICLIB
     Indication: BREAST CANCER
     Dosage: UNK
     Route: 048
     Dates: start: 201703
  2. IBRANCE [Suspect]
     Active Substance: PALBOCICLIB
     Dosage: 125 MG, UNK
     Route: 048
  3. FASLODEX [Concomitant]
     Active Substance: FULVESTRANT
     Indication: BREAST CANCER
     Dosage: 500 MG, UNK ,(IN EACH HIP EVERY 28 DAYS)
  4. IBRANCE [Suspect]
     Active Substance: PALBOCICLIB
     Dosage: 100 MG, CYCLIC, (1 CAPSULE BY MOUTH FOR 21 DAYS AND OFF FOR 7 DAYS)
     Route: 048
  5. SYNTHROID [Concomitant]
     Active Substance: LEVOTHYROXINE SODIUM
     Indication: THYROID DISORDER
     Dosage: 100 UG, 1X/DAY
     Route: 048
  6. ATENOLOL. [Concomitant]
     Active Substance: ATENOLOL
     Indication: BLOOD PRESSURE ABNORMAL
     Dosage: 75 MG, 1X/DAY
     Route: 048

REACTIONS (4)
  - Ligament sprain [Not Recovered/Not Resolved]
  - Pain [Unknown]
  - Fatigue [Recovering/Resolving]
  - Chondropathy [Unknown]

NARRATIVE: CASE EVENT DATE: 2018
